FAERS Safety Report 5149374-7 (Version None)
Quarter: 2006Q4

REPORT INFORMATION
  Report Type: 
  Country: None (occurrence: None)
  Receive Date: 20061113
  Receipt Date: 20051130
  Transmission Date: 20070319
  Serious: No
  Sender: FDA-Public Use
  Company Number: 426977

PATIENT
  Age: 84 Year
  Sex: Female

DRUGS (5)
  1. COREG [Suspect]
     Indication: HYPERTENSION
     Dosage: 25MG PER DAY
     Route: 048
  2. NORVASC [Concomitant]
  3. ALACEPRIL [Concomitant]
  4. TIMOPTIC [Concomitant]
  5. UNKNOWN MEDICATION [Concomitant]

REACTIONS (1)
  - VISUAL DISTURBANCE [None]
